FAERS Safety Report 19452015 (Version 1)
Quarter: 2021Q2

REPORT INFORMATION
  Report Type: Spontaneous
  Country: US (occurrence: US)
  Receive Date: 20210623
  Receipt Date: 20210623
  Transmission Date: 20210717
  Serious: Yes (Other)
  Sender: FDA-Public Use
  Company Number: US-SA-2021SA204064

PATIENT
  Sex: Male

DRUGS (3)
  1. DUPILUMAB [Suspect]
     Active Substance: DUPILUMAB
     Indication: IDIOPATHIC URTICARIA
  2. DUPILUMAB [Suspect]
     Active Substance: DUPILUMAB
     Indication: NASAL POLYPS
     Route: 058
     Dates: start: 20210609
  3. XOLAIR [Concomitant]
     Active Substance: OMALIZUMAB

REACTIONS (19)
  - Fatigue [Unknown]
  - Pain [Unknown]
  - Arthralgia [Unknown]
  - Tendon pain [Unknown]
  - Upper-airway cough syndrome [Unknown]
  - Tinnitus [Unknown]
  - Viral infection [Unknown]
  - Paraesthesia [Unknown]
  - Hypersomnia [Unknown]
  - Ill-defined disorder [Unknown]
  - Staphylococcal infection [Unknown]
  - Renal disorder [Unknown]
  - Polymerase chain reaction positive [Unknown]
  - Fungal infection [Unknown]
  - Feeling hot [Unknown]
  - Myalgia [Unknown]
  - Ligament pain [Unknown]
  - Gastrointestinal disorder [Unknown]
  - Product use in unapproved indication [Unknown]
